FAERS Safety Report 17291644 (Version 1)
Quarter: 2020Q1

REPORT INFORMATION
  Report Type: Spontaneous
  Country: CN (occurrence: CN)
  Receive Date: 20200121
  Receipt Date: 20200121
  Transmission Date: 20200409
  Serious: Yes (Hospitalization, Other)
  Sender: FDA-Public Use
  Company Number: CN-BAYER-2019-226987

PATIENT
  Age: 75 Year
  Sex: Female
  Weight: 65 kg

DRUGS (2)
  1. MAGNEVIST [Suspect]
     Active Substance: GADOPENTETATE DIMEGLUMINE
     Indication: MAGNETIC RESONANCE IMAGING
  2. MAGNEVIST [Suspect]
     Active Substance: GADOPENTETATE DIMEGLUMINE
     Indication: LYMPHOMA
     Dosage: 20 ML, ONCE
     Route: 042
     Dates: start: 20191209, end: 20191209

REACTIONS (4)
  - Respiratory arrest [None]
  - Cardiac arrest [None]
  - Restlessness [None]
  - Pulse absent [None]

NARRATIVE: CASE EVENT DATE: 20191209
